FAERS Safety Report 4696133-5 (Version None)
Quarter: 2005Q2

REPORT INFORMATION
  Report Type: 
  Country: None (occurrence: None)
  Receive Date: 20050620
  Receipt Date: 20050608
  Transmission Date: 20051028
  Serious: Yes (Hospitalization, Other)
  Sender: FDA-Public Use
  Company Number: 2005076419

PATIENT
  Age: 55 Year
  Sex: Male

DRUGS (1)
  1. LYRICA [Suspect]
     Indication: DIABETIC NEUROPATHY
     Dosage: 150 MG (1 IN 1 D), ORAL
     Route: 048
     Dates: start: 20050301, end: 20050401

REACTIONS (15)
  - ANGINA PECTORIS [None]
  - ANTINUCLEAR ANTIBODY POSITIVE [None]
  - BRONCHITIS [None]
  - CHEST X-RAY ABNORMAL [None]
  - COLLAGEN DISORDER [None]
  - HYPERHIDROSIS [None]
  - HYPERTENSION [None]
  - INFECTION [None]
  - LUPUS-LIKE SYNDROME [None]
  - OBSTRUCTION [None]
  - PAIN [None]
  - PLEURISY [None]
  - SUPRAVENTRICULAR TACHYCARDIA [None]
  - TACHYCARDIA [None]
  - TONGUE NEOPLASM MALIGNANT STAGE UNSPECIFIED [None]
